FAERS Safety Report 5135736-0 (Version None)
Quarter: 2006Q4

REPORT INFORMATION
  Report Type: 
  Country: None (occurrence: None)
  Receive Date: 20061020
  Receipt Date: 20061004
  Transmission Date: 20070319
  Serious: Yes (Hospitalization, Other)
  Sender: FDA-Public Use
  Company Number: 2006096027

PATIENT
  Age: 43 Year
  Sex: Male
  Weight: 102.0593 kg

DRUGS (2)
  1. BEXTRA [Suspect]
     Indication: ARTHRITIS
     Dosage: 10MG AND 20 MG (1 TO 2 PER DAY), ORAL
     Route: 048
     Dates: start: 20010101
  2. BEXTRA [Suspect]
     Indication: PAIN
     Dosage: 10MG AND 20 MG (1 TO 2 PER DAY), ORAL
     Route: 048
     Dates: start: 20010101

REACTIONS (7)
  - ANGINA PECTORIS [None]
  - ARRHYTHMIA [None]
  - CARDIOVASCULAR DISORDER [None]
  - CEREBROVASCULAR DISORDER [None]
  - CORONARY ARTERY OCCLUSION [None]
  - MYOCARDIAL INFARCTION [None]
  - POLYTRAUMATISM [None]
